FAERS Safety Report 24216791 (Version 1)
Quarter: 2024Q3

REPORT INFORMATION
  Report Type: Spontaneous
  Country: FR (occurrence: FR)
  Receive Date: 20240816
  Receipt Date: 20240816
  Transmission Date: 20241016
  Serious: Yes (Hospitalization, Other)
  Sender: ZYDUS PHARM
  Company Number: FR-CADILA HEALTHCARE LIMITED-FR-ZYDUS-110863

PATIENT

DRUGS (4)
  1. TRAMADOL [Suspect]
     Active Substance: TRAMADOL\TRAMADOL HYDROCHLORIDE
     Indication: Product used for unknown indication
     Dosage: UNK
     Route: 065
  2. BROMAZEPAM [Suspect]
     Active Substance: BROMAZEPAM
     Indication: Product used for unknown indication
     Dosage: UNK
     Route: 065
  3. ZOLPIDEM [Suspect]
     Active Substance: ZOLPIDEM TARTRATE
     Indication: Product used for unknown indication
     Dosage: UNK
     Route: 065
  4. ALCOHOL [Suspect]
     Active Substance: ALCOHOL
     Indication: Product used for unknown indication
     Dosage: UNK
     Route: 065

REACTIONS (12)
  - Encephalopathy [Unknown]
  - Pneumonia aspiration [Unknown]
  - Cardiac failure [Unknown]
  - Acute kidney injury [Unknown]
  - Acute hepatic failure [Unknown]
  - Confusional state [Unknown]
  - Motor dysfunction [Unknown]
  - Pyramidal tract syndrome [Unknown]
  - Amnesia [Unknown]
  - Toxicity to various agents [Unknown]
  - Executive dysfunction [Unknown]
  - Intentional overdose [Unknown]
